FAERS Safety Report 23944257 (Version 2)
Quarter: 2024Q3

REPORT INFORMATION
  Report Type: Spontaneous
  Country: JP (occurrence: JP)
  Receive Date: 20240606
  Receipt Date: 20240710
  Transmission Date: 20241016
  Serious: No
  Sender: UCB
  Company Number: JP-UCBJ-CD202404891UCBPHAPROD

PATIENT

DRUGS (1)
  1. VIMPAT [Suspect]
     Active Substance: LACOSAMIDE
     Indication: Product used for unknown indication
     Dosage: 200 MILLIGRAM, 2X/DAY (BID)
     Route: 048

REACTIONS (2)
  - Somnolence [Unknown]
  - Drug ineffective [Unknown]
